FAERS Safety Report 5610406-0 (Version None)
Quarter: 2008Q1

REPORT INFORMATION
  Report Type: 
  Country: None (occurrence: None)
  Receive Date: 20080128
  Receipt Date: 20080114
  Transmission Date: 20080703
  Serious: Yes (Other)
  Sender: FDA-Public Use
  Company Number: 2007BI022545

PATIENT
  Sex: Female

DRUGS (2)
  1. TYSABRI [Suspect]
     Indication: MULTIPLE SCLEROSIS
     Dosage: 300 MG;QM;IV
     Route: 042
     Dates: start: 20070731
  2. AVONEX [Concomitant]

REACTIONS (4)
  - BONE DISORDER [None]
  - CONTRAST MEDIA REACTION [None]
  - GINGIVAL INFECTION [None]
  - TOOTH INFECTION [None]
